FAERS Safety Report 8561435 (Version 4)
Quarter: 2012Q4

REPORT INFORMATION
  Report Type: 
  Country: US (occurrence: US)
  Receive Date: 20120514
  Receipt Date: 20120827
  Transmission Date: 20130627
  Serious: Yes (Hospitalization)
  Sender: FDA-Public Use
  Company Number: US-ELI_LILLY_AND_COMPANY-US201204005166

PATIENT
  Age: 82 None
  Sex: Female
  Weight: 46.26 kg

DRUGS (20)
  1. FORTEO [Suspect]
     Indication: OSTEOPOROSIS
     Dosage: 20 ug, qd
     Route: 058
     Dates: start: 20120413, end: 20120415
  2. FORTEO [Suspect]
     Dosage: 20 ug, qd
     Route: 058
     Dates: start: 20120427
  3. FORTEO [Suspect]
     Dosage: 20 ug, qd
     Route: 058
     Dates: start: 20120726
  4. AMLODIPINE [Concomitant]
  5. BABY ASPIRIN [Concomitant]
  6. COQ10 [Concomitant]
     Dosage: 100 mg, qd
  7. FISH OIL [Concomitant]
  8. FLAGYL [Concomitant]
     Dosage: 250 mg, qd
  9. POTASSIUM [Concomitant]
     Dosage: 20 mEq, qd
  10. CHLORACON [Concomitant]
  11. LORAZEPAM [Concomitant]
  12. LUTEIN [Concomitant]
     Indication: EYE DISORDER
     Dosage: UNK
  13. METOPROLOL [Concomitant]
     Dosage: 25 mg, tid
  14. NIASPAN [Concomitant]
     Dosage: 500 mg, qd
  15. PLAVIX [Concomitant]
     Dosage: 75 mg, qd
  16. PRAVASTATIN [Concomitant]
     Dosage: 20 mg, qd
  17. VITAMIN D NOS [Concomitant]
  18. BENAZEPRIL HCL [Concomitant]
     Dosage: UNK, qd
  19. AMOKSICILIN [Concomitant]
     Indication: NASOPHARYNGITIS
     Dosage: 500 mg, qd
  20. MAGNESIUM [Concomitant]
     Dosage: 600 mg, qd

REACTIONS (5)
  - Colitis ischaemic [Recovered/Resolved]
  - Hypotension [Recovering/Resolving]
  - Nasopharyngitis [Not Recovered/Not Resolved]
  - Dizziness [Unknown]
  - Rash [Unknown]
